FAERS Safety Report 14411857 (Version 1)
Quarter: 2018Q1

REPORT INFORMATION
  Report Type: Spontaneous
  Country: TR (occurrence: TR)
  Receive Date: 20180119
  Receipt Date: 20180119
  Transmission Date: 20180509
  Serious: Yes (Hospitalization)
  Sender: FDA-Public Use
  Company Number: TR-MYLANLABS-2018M1003023

PATIENT
  Age: 2 Day
  Sex: Male

DRUGS (4)
  1. PHENOBARBITAL. [Concomitant]
     Active Substance: PHENOBARBITAL
     Indication: GENERALISED TONIC-CLONIC SEIZURE
     Dosage: UNK
     Route: 065
  2. MIDAZOLAM [Concomitant]
     Active Substance: MIDAZOLAM HYDROCHLORIDE
     Indication: GENERALISED TONIC-CLONIC SEIZURE
     Dosage: UNK
     Route: 065
  3. SALINE                             /00075401/ [Concomitant]
     Active Substance: SODIUM CHLORIDE
     Indication: GENERALISED TONIC-CLONIC SEIZURE
     Dosage: PHENYTOIN WAS DILUTED WITH SALINE SOLUTION TO ACHIEVE FINAL CONCENTRATION OF 5 MG/ML
     Route: 041
  4. PHENYTOIN. [Suspect]
     Active Substance: PHENYTOIN
     Indication: GENERALISED TONIC-CLONIC SEIZURE
     Dosage: DILUTED IN SALINE; 40MG WAS INTENDED TO INFUSE OVER 30 MINUTES, THROUGH A PERIPHERAL VENOUS CANNU...
     Route: 041

REACTIONS (2)
  - Purple glove syndrome [Recovering/Resolving]
  - Muscle atrophy [Unknown]
